FAERS Safety Report 17557659 (Version 5)
Quarter: 2022Q1

REPORT INFORMATION
  Report Type: Spontaneous
  Country: JP (occurrence: None)
  Receive Date: 20200318
  Receipt Date: 20220309
  Transmission Date: 20220423
  Serious: Yes (Other)
  Sender: FDA-Public Use
  Company Number: JP-EISAI EUROPE LTD-E2020-07193-SPO-JP

PATIENT
  Age: 79 Year
  Sex: Male
  Weight: 48.9 kg

DRUGS (7)
  1. ARICEPT [Suspect]
     Active Substance: DONEPEZIL HYDROCHLORIDE
     Indication: Senile dementia
     Route: 048
     Dates: start: 20090219
  2. LYRICA [Suspect]
     Active Substance: PREGABALIN
     Indication: Post herpetic neuralgia
     Route: 048
     Dates: start: 20100714, end: 20100720
  3. LYRICA [Suspect]
     Active Substance: PREGABALIN
     Indication: Herpes zoster
  4. METHYLCOBALAMIN [Suspect]
     Active Substance: METHYLCOBALAMIN
     Indication: Post herpetic neuralgia
     Route: 065
     Dates: start: 20090627
  5. LOXOPROFEN SODIUM [Suspect]
     Active Substance: LOXOPROFEN SODIUM
     Indication: Post herpetic neuralgia
     Route: 048
     Dates: start: 20090627
  6. REBAMIPIDE [Suspect]
     Active Substance: REBAMIPIDE
     Indication: Gastritis prophylaxis
     Route: 048
     Dates: start: 20090627
  7. NEUROTROPIN [Suspect]
     Active Substance: NEUROTROPIN
     Indication: Post herpetic neuralgia
     Route: 042
     Dates: start: 20100430

REACTIONS (2)
  - Epilepsy [Recovering/Resolving]
  - Pain [Recovering/Resolving]

NARRATIVE: CASE EVENT DATE: 20100715
